FAERS Safety Report 5794760-5 (Version None)
Quarter: 2008Q2

REPORT INFORMATION
  Report Type: 
  Country: None (occurrence: None)
  Receive Date: 20080630
  Receipt Date: 20080623
  Transmission Date: 20081010
  Serious: Yes (Other)
  Sender: FDA-Public Use
  Company Number: GB-WYE-G01518508

PATIENT
  Sex: Male
  Weight: 60 kg

DRUGS (10)
  1. PIPERACILLIN AND TAZOBACTAM [Suspect]
     Indication: BRONCHIECTASIS
     Route: 042
     Dates: start: 20020101
  2. LANSOPRAZOLE [Concomitant]
     Route: 048
  3. PREDNISOLONE [Concomitant]
     Route: 048
  4. SERETIDE [Concomitant]
     Route: 055
  5. WARFARIN SODIUM [Concomitant]
     Route: 048
  6. WARFARIN SODIUM [Concomitant]
     Route: 048
  7. SPIRONOLACTONE [Concomitant]
     Route: 048
  8. ALENDRONIC ACID [Concomitant]
     Route: 048
  9. NIFEDIPINE [Concomitant]
     Route: 048
  10. ATORVASTATIN [Concomitant]
     Route: 048

REACTIONS (2)
  - PAIN IN EXTREMITY [None]
  - PHARMACEUTICAL PRODUCT COMPLAINT [None]
